FAERS Safety Report 4343043-9 (Version None)
Quarter: 2004Q2

REPORT INFORMATION
  Report Type: 
  Country: None (occurrence: None)
  Receive Date: 20040421
  Receipt Date: 20040412
  Transmission Date: 20050107
  Serious: Yes (Hospitalization)
  Sender: FDA-Public Use
  Company Number: FR-ROCHE-364190

PATIENT
  Age: 28 Year
  Sex: Female

DRUGS (6)
  1. LOXEN [Suspect]
     Indication: DRUG USE FOR UNKNOWN INDICATION
     Route: 041
     Dates: start: 20020121, end: 20020121
  2. LOXEN [Suspect]
     Route: 041
     Dates: start: 20020122, end: 20020122
  3. LOXEN [Suspect]
     Route: 041
     Dates: start: 20020123, end: 20020123
  4. LOXEN [Suspect]
     Route: 041
     Dates: start: 20020124, end: 20020124
  5. SALBUMOL [Suspect]
     Indication: DRUG USE FOR UNKNOWN INDICATION
     Route: 050
     Dates: start: 20011215, end: 20020115
  6. SALBUMOL [Suspect]
     Route: 050
     Dates: start: 20020121

REACTIONS (1)
  - ACUTE PULMONARY OEDEMA [None]
